FAERS Safety Report 7282975-9 (Version None)
Quarter: 2011Q1

REPORT INFORMATION
  Report Type: 
  Country: None (occurrence: None)
  Receive Date: 20110209
  Receipt Date: 20110201
  Transmission Date: 20110831
  Serious: Yes (Hospitalization)
  Sender: FDA-Public Use
  Company Number: NL-GENZYME-CLOF-1001351

PATIENT
  Sex: Male
  Weight: 72 kg

DRUGS (3)
  1. EVOLTRA [Suspect]
     Indication: ACUTE LEUKAEMIA
     Dosage: 27 MG, QDX5
     Route: 042
     Dates: start: 20101023, end: 20101027
  2. IDARUBICIN [Suspect]
     Indication: ACUTE LEUKAEMIA
     Dosage: 21 MG, QDX3
     Route: 042
     Dates: start: 20101023, end: 20101025
  3. CYTARABINE [Suspect]
     Indication: ACUTE LEUKAEMIA
     Dosage: 360 MG, QD
     Route: 042
     Dates: start: 20101023, end: 20101030

REACTIONS (1)
  - PANCYTOPENIA [None]
